FAERS Safety Report 4645266-8 (Version None)
Quarter: 2005Q2

REPORT INFORMATION
  Report Type: 
  Country: None (occurrence: None)
  Receive Date: 20050331
  Receipt Date: 20050225
  Transmission Date: 20051028
  Serious: No
  Sender: FDA-Public Use
  Company Number: 05P-163-0292102-00

PATIENT
  Age: 66 Year
  Sex: Female

DRUGS (12)
  1. HUMIRA [Suspect]
     Indication: RHEUMATOID ARTHRITIS
     Dosage: 40 MG, 1 IN 2 WK, SUBCUTANEOUS
     Route: 058
     Dates: start: 20030101
  2. CELECOXIB [Concomitant]
  3. METHOTREXATE [Concomitant]
  4. PREDNISONE TAB [Concomitant]
  5. ATENOLOL [Concomitant]
  6. LEVOTHYROXINE SODIUM [Concomitant]
  7. SERETIDE MITE [Concomitant]
  8. SALBUTAMOL [Concomitant]
  9. PANTOPRAZOLE [Concomitant]
  10. POTASSIUM CITRATE [Concomitant]
  11. FUROSEMIDE [Concomitant]
  12. COUMADIN [Concomitant]

REACTIONS (1)
  - RESPIRATORY TRACT INFECTION [None]
